FAERS Safety Report 20342952 (Version 1)
Quarter: 2022Q1

REPORT INFORMATION
  Report Type: Spontaneous
  Country: US (occurrence: US)
  Receive Date: 20220117
  Receipt Date: 20220117
  Transmission Date: 20220423
  Serious: No
  Sender: FDA-Public Use
  Company Number: US-BioDelivery Sciences International-2021BDSI0513

PATIENT
  Age: 49 Year
  Sex: Male
  Weight: 84.626 kg

DRUGS (5)
  1. BUPRENORPHINE [Suspect]
     Active Substance: BUPRENORPHINE
     Indication: Pain
     Route: 002
     Dates: start: 20211105, end: 20211111
  2. BUPRENORPHINE [Suspect]
     Active Substance: BUPRENORPHINE
     Route: 002
     Dates: start: 20211112, end: 20211123
  3. BUPRENORPHINE [Suspect]
     Active Substance: BUPRENORPHINE
     Route: 002
     Dates: start: 20211124
  4. CETIRIZINE HYDROCHLORIDE [Concomitant]
     Active Substance: CETIRIZINE HYDROCHLORIDE
     Indication: Multiple allergies
     Dosage: ONCE AT NIGHT AT BEDTIME (11:00 PM)
     Route: 065
     Dates: start: 20210913
  5. ACETAMINOPHEN [Concomitant]
     Active Substance: ACETAMINOPHEN
     Indication: Pain
     Route: 065
     Dates: start: 2011

REACTIONS (6)
  - Wrong technique in product usage process [Unknown]
  - Therapeutic response decreased [Unknown]
  - Back pain [Recovering/Resolving]
  - Oral administration complication [Unknown]
  - Product adhesion issue [Unknown]
  - Product solubility abnormal [Unknown]

NARRATIVE: CASE EVENT DATE: 20211101
